FAERS Safety Report 9261333 (Version 1)
Quarter: 2013Q2

REPORT INFORMATION
  Report Type: Spontaneous
  Country: US (occurrence: US)
  Receive Date: 20130429
  Receipt Date: 20130429
  Transmission Date: 20140414
  Serious: Yes (Other)
  Sender: FDA-Public Use
  Company Number: US-TEVA-400533USA

PATIENT
  Age: 46 Year
  Sex: Female

DRUGS (2)
  1. CEFALEXIN [Suspect]
     Indication: ANTIBIOTIC PROPHYLAXIS
     Dosage: 500MG EVERY 6H; PT WAS DISCHARGED ON 1-WK OF CEFALEXIN
     Route: 048
  2. CEFAZOLIN [Suspect]
     Indication: ANTIBIOTIC PROPHYLAXIS
     Dosage: 1G; GIVEN PREOPERATIVELY
     Route: 042

REACTIONS (2)
  - Serratia infection [Recovering/Resolving]
  - Folliculitis [Recovering/Resolving]
